FAERS Safety Report 10255587 (Version 2)
Quarter: 2014Q2

REPORT INFORMATION
  Report Type: Spontaneous
  Country: NL (occurrence: None)
  Receive Date: 20140620
  Receipt Date: 20140625
  Transmission Date: 20141212
  Serious: Yes (Other)
  Sender: FDA-Public Use
  Company Number: AUR-APL-2014-06455

PATIENT
  Age: 28 Year
  Sex: Male
  Weight: 96 kg

DRUGS (2)
  1. GABAPENTIN (GABAPENTIN) [Suspect]
     Indication: SLEEP DISORDER
     Dates: start: 20130101, end: 20140523
  2. TOPIRAMATE [Suspect]
     Indication: SLEEP DISORDER
     Dates: start: 20140516, end: 20140523

REACTIONS (7)
  - Off label use [None]
  - Sleep disorder [None]
  - Cognitive disorder [None]
  - Memory impairment [None]
  - Agitation [None]
  - Drug interaction [None]
  - Disturbance in attention [None]
